FAERS Safety Report 9866907 (Version 1)
Quarter: 2014Q1

REPORT INFORMATION
  Report Type: Spontaneous
  Country: US (occurrence: None)
  Receive Date: 20140131
  Receipt Date: 20140131
  Transmission Date: 20141002
  Serious: Yes (Hospitalization)
  Sender: FDA-Public Use
  Company Number: 2014AP000827

PATIENT
  Sex: 0
  Weight: 2.65 kg

DRUGS (10)
  1. QUETIAPINE FUMARATE [Suspect]
     Indication: SUICIDAL BEHAVIOUR
     Dosage: ; TRPL
  2. PAROXETINE HCL TABLETS [Suspect]
     Dosage: ; TRPL
  3. LAMOTRIGINE TABLETS [Suspect]
     Dosage: ; TRPL
  4. FLUOXETINE HYDROCHLORIDE ORAL SOLUTION [Suspect]
     Dosage: ; TRPL
  5. BETAMETHASONE [Suspect]
     Dosage: ; TRPL?
  6. CLONAZEPAM [Suspect]
     Dosage: ; TRPLE
  7. LORAZEPAM [Suspect]
     Dosage: ; TRPL
  8. HALOPERIDOL [Suspect]
     Dosage: ; TRPL
  9. GLYBURIDE [Suspect]
  10. ANESTHETICS [Suspect]
     Dosage: ; TRPL

REACTIONS (6)
  - Foetal exposure during pregnancy [None]
  - Transverse presentation [None]
  - Condition aggravated [None]
  - Unevaluable event [None]
  - Maternal drugs affecting foetus [None]
  - Caesarean section [None]
